FAERS Safety Report 9454066 (Version 1)
Quarter: 2013Q3

REPORT INFORMATION
  Report Type: Spontaneous
  Country: US (occurrence: None)
  Receive Date: 20130809
  Receipt Date: 20130809
  Transmission Date: 20140515
  Serious: No
  Sender: FDA-Public Use
  Company Number: None

PATIENT
  Age: 84 Year
  Sex: Male

DRUGS (1)
  1. ZYTIGA [Suspect]
     Indication: PROSTATE CANCER
     Dosage: 4 TABLETS DAILY PO
     Route: 048
     Dates: start: 20130528, end: 20130808

REACTIONS (3)
  - Fatigue [None]
  - Blood glucose increased [None]
  - Increased tendency to bruise [None]
